FAERS Safety Report 5091704-9 (Version None)
Quarter: 2006Q3

REPORT INFORMATION
  Report Type: 
  Country: None (occurrence: None)
  Receive Date: 20060824
  Receipt Date: 20060811
  Transmission Date: 20061208
  Serious: Yes (Other)
  Sender: FDA-Public Use
  Company Number: 2006-BP-09369RO

PATIENT
  Age: 50 Year
  Sex: Female

DRUGS (4)
  1. METHOTREXATE [Suspect]
     Indication: BURKITT'S LYMPHOMA
     Dosage: SEE IMAGE
  2. PIPERACILLIN [Suspect]
     Indication: FEBRILE NEUTROPENIA
  3. TAZOBACTAM [Suspect]
     Indication: FEBRILE NEUTROPENIA
  4. CHEMOTHERAPY (REPORTED IN NARRATIVE) (OTHER CHEMOTHERAPEUTICS) [Concomitant]

REACTIONS (5)
  - CHEMOTHERAPEUTIC DRUG LEVEL INCREASED [None]
  - DRUG INTERACTION [None]
  - FEBRILE NEUTROPENIA [None]
  - PNEUMONIA [None]
  - PSEUDOMONAS INFECTION [None]
